FAERS Safety Report 10290516 (Version 1)
Quarter: 2014Q3

REPORT INFORMATION
  Report Type: Spontaneous
  Country: CH (occurrence: CH)
  Receive Date: 20140710
  Receipt Date: 20140710
  Transmission Date: 20150326
  Serious: Yes (Other)
  Sender: FDA-Public Use
  Company Number: CH-PFIZER INC-2014190359

PATIENT
  Age: 49 Year
  Sex: Male

DRUGS (4)
  1. TAVEGYL [Concomitant]
     Active Substance: CLEMASTINE FUMARATE
     Indication: ALLERGY PROPHYLAXIS
     Dosage: 1 DF, SINGLE
     Dates: start: 20140425, end: 20140425
  2. IVRACAIN [Suspect]
     Active Substance: CHLOROPROCAINE HYDROCHLORIDE
     Indication: CARPAL TUNNEL DECOMPRESSION
     Dosage: 1 DF, SINGLE
     Dates: start: 201207, end: 201207
  3. SOLU-MEDROL [Suspect]
     Active Substance: METHYLPREDNISOLONE SODIUM SUCCINATE
     Indication: ALLERGY PROPHYLAXIS
     Dosage: 125 MG, SINGLE
     Route: 041
     Dates: start: 20140425, end: 20140425
  4. XYLONEST [Suspect]
     Active Substance: PRILOCAINE HYDROCHLORIDE
     Indication: ALLERGY TEST
     Dosage: 1 DF, SINGLE
     Route: 003
     Dates: start: 201405, end: 201405

REACTIONS (10)
  - Skin test positive [Recovered/Resolved]
  - Type I hypersensitivity [Recovered/Resolved]
  - Dizziness [Recovered/Resolved]
  - Dyspnoea [Recovered/Resolved]
  - Urticaria [Recovered/Resolved]
  - Feeling hot [Recovered/Resolved]
  - Swollen tongue [Recovered/Resolved]
  - Discomfort [Recovered/Resolved]
  - Pruritus [Recovered/Resolved]
  - Anxiety [Recovered/Resolved]

NARRATIVE: CASE EVENT DATE: 201207
